FAERS Safety Report 14550887 (Version 1)
Quarter: 2018Q1

REPORT INFORMATION
  Report Type: Spontaneous
  Country: US (occurrence: US)
  Receive Date: 20180220
  Receipt Date: 20180220
  Transmission Date: 20180509
  Serious: No
  Sender: FDA-Public Use
  Company Number: US-TEVA-771137USA

PATIENT
  Sex: Female

DRUGS (2)
  1. AMPHETAMINE W/DEXTROAMPHETAMINE [Suspect]
     Active Substance: AMPHETAMINE SULFATE\DEXTROAMPHETAMINE
     Indication: ATTENTION DEFICIT/HYPERACTIVITY DISORDER
     Dosage: HALF TABLET IN THE MORNING AND ANOTHER HALF IN THE AFTERNOON
  2. AMPHETAMINE W/DEXTROAMPHETAMINE [Suspect]
     Active Substance: AMPHETAMINE SULFATE\DEXTROAMPHETAMINE
     Indication: NEURALGIA

REACTIONS (5)
  - Drug ineffective [Unknown]
  - Product taste abnormal [Unknown]
  - Mood altered [Unknown]
  - Disturbance in attention [Unknown]
  - Product physical issue [Unknown]
